FAERS Safety Report 10695970 (Version 1)
Quarter: 2015Q1

REPORT INFORMATION
  Report Type: Spontaneous
  Country: US (occurrence: None)
  Receive Date: 20150106
  Receipt Date: 20150106
  Transmission Date: 20150721
  Serious: Yes (Life-Threatening, Hospitalization, Disabling, Other)
  Sender: FDA-Public Use
  Company Number: None

PATIENT
  Age: 72 Year
  Sex: Male
  Weight: 83.46 kg

DRUGS (2)
  1. METHADONE [Suspect]
     Active Substance: METHADONE HYDROCHLORIDE
  2. PRIALT [Suspect]
     Active Substance: ZICONOTIDE ACETATE

REACTIONS (3)
  - Arrhythmia [None]
  - Malaise [None]
  - Tachycardia [None]

NARRATIVE: CASE EVENT DATE: 20141202
